FAERS Safety Report 22029376 (Version 1)
Quarter: 2023Q1

REPORT INFORMATION
  Report Type: Spontaneous
  Country: US (occurrence: None)
  Receive Date: 20230221
  Receipt Date: 20230221
  Transmission Date: 20230417
  Serious: No
  Sender: FDA-Public Use
  Company Number: None

PATIENT
  Age: 32 Year
  Sex: Female
  Weight: 69.75 kg

DRUGS (1)
  1. METHYLPHENIDATE [Suspect]
     Active Substance: METHYLPHENIDATE
     Indication: Attention deficit hyperactivity disorder
     Dosage: OTHER QUANTITY : 1 CAPSULE(S);?
     Route: 048
     Dates: start: 20230217, end: 20230221

REACTIONS (9)
  - Product substitution issue [None]
  - Product supply issue [None]
  - Dizziness [None]
  - Tunnel vision [None]
  - Tremor [None]
  - Palpitations [None]
  - Cardiac flutter [None]
  - Tachyphrenia [None]
  - Decreased activity [None]

NARRATIVE: CASE EVENT DATE: 20230221
